FAERS Safety Report 7488169-6 (Version None)
Quarter: 2011Q2

REPORT INFORMATION
  Report Type: 
  Country: None (occurrence: None)
  Receive Date: 20110518
  Receipt Date: 20110506
  Transmission Date: 20111010
  Serious: Yes (Hospitalization)
  Sender: FDA-Public Use
  Company Number: DE-ROCHE-776520

PATIENT
  Sex: Female
  Weight: 52 kg

DRUGS (3)
  1. BEVACIZUMAB [Suspect]
     Dosage: LAST APPLICATION PRIOR TO THE EVENT ON 26 APR 2011, DAY 1 OF CYCLE 6
     Route: 042
     Dates: end: 20110426
  2. CIMETIDINE [Suspect]
     Dosage: LAST APPLICATION PRIOR TO THE EVENT ON 2 MAY 2011
     Route: 042
     Dates: end: 20110502
  3. PACLITAXEL [Suspect]
     Dosage: CYCLE 6, LAST APPLICATION PRIOR TO THE EVENT ON 2 MAY 2011
     Route: 042
     Dates: end: 20110502

REACTIONS (1)
  - ACUTE ABDOMEN [None]
